FAERS Safety Report 20412676 (Version 2)
Quarter: 2022Q3

REPORT INFORMATION
  Report Type: Spontaneous
  Country: KR (occurrence: KR)
  Receive Date: 20220201
  Receipt Date: 20220928
  Transmission Date: 20221027
  Serious: No
  Sender: FDA-Public Use
  Company Number: KR-NORGINE LIMITED-NOR202200506

PATIENT
  Age: 54 Year
  Sex: Female

DRUGS (1)
  1. PLENVU [Suspect]
     Active Substance: ASCORBIC ACID\POLYETHYLENE GLYCOL 3350\POTASSIUM CHLORIDE\SODIUM ASCORBATE\SODIUM CHLORIDE\SODIUM SU
     Indication: Product used for unknown indication
     Dosage: TWO- DAY SPLIT DOSING
     Route: 048
     Dates: start: 20220117, end: 20220117

REACTIONS (9)
  - Intermenstrual bleeding [Recovered/Resolved]
  - Dizziness [Recovered/Resolved]
  - Urticaria [Recovered/Resolved]
  - Hypersensitivity [Recovered/Resolved]
  - Vomiting [Recovered/Resolved]
  - Thirst [Recovered/Resolved]
  - Chills [Unknown]
  - Rash [Unknown]
  - Nausea [Unknown]

NARRATIVE: CASE EVENT DATE: 20220101
